FAERS Safety Report 19235455 (Version 1)
Quarter: 2021Q2

REPORT INFORMATION
  Report Type: Spontaneous
  Country: US (occurrence: US)
  Receive Date: 20210510
  Receipt Date: 20210510
  Transmission Date: 20210717
  Serious: No
  Sender: FDA-Public Use
  Company Number: US-SA-2021SA140889

PATIENT
  Age: 77 Year
  Sex: Male

DRUGS (4)
  1. LANTUS [Suspect]
     Active Substance: INSULIN GLARGINE
     Dosage: 40 IU, QD
  2. LANTUS [Suspect]
     Active Substance: INSULIN GLARGINE
     Indication: TYPE 2 DIABETES MELLITUS
     Dosage: 12 IU, QD
     Dates: start: 2020
  3. GLIPIZIDE. [Concomitant]
     Active Substance: GLIPIZIDE
     Indication: NEURALGIA
     Dosage: DURING THE DAY
  4. LANTUS [Suspect]
     Active Substance: INSULIN GLARGINE
     Dosage: 10 IU, QD (AT NIGHT)

REACTIONS (2)
  - Pain in extremity [Unknown]
  - Gait disturbance [Unknown]
